FAERS Safety Report 5736652-3 (Version None)
Quarter: 2008Q2

REPORT INFORMATION
  Report Type: 
  Country: None (occurrence: None)
  Receive Date: 20080513
  Receipt Date: 20080505
  Transmission Date: 20081010
  Serious: Yes (Other)
  Sender: FDA-Public Use
  Company Number: DE-PFIZER INC-2008039136

PATIENT
  Sex: Female
  Weight: 60 kg

DRUGS (1)
  1. SORTIS [Suspect]
     Indication: CAROTID ARTERIOSCLEROSIS
     Route: 048
     Dates: start: 20080121, end: 20080302

REACTIONS (5)
  - GAMMA-GLUTAMYLTRANSFERASE INCREASED [None]
  - HYPERTENSION [None]
  - MACULAR OEDEMA [None]
  - OCULAR VASCULAR DISORDER [None]
  - RETINAL HAEMORRHAGE [None]
